FAERS Safety Report 22602510 (Version 4)
Quarter: 2025Q1

REPORT INFORMATION
  Report Type: Report from Study
  Country: US (occurrence: US)
  Receive Date: 20230614
  Receipt Date: 20250321
  Transmission Date: 20250408
  Serious: Yes (Other)
  Sender: ABBVIE
  Company Number: US-ABBVIE-5289342

PATIENT
  Age: 50 Year
  Sex: Female

DRUGS (5)
  1. HUMIRA [Suspect]
     Active Substance: ADALIMUMAB
     Indication: Rheumatoid arthritis
     Route: 058
  2. HUMIRA [Suspect]
     Active Substance: ADALIMUMAB
     Route: 058
     Dates: start: 2016
  3. HUMIRA [Suspect]
     Active Substance: ADALIMUMAB
     Route: 058
     Dates: start: 20220309
  4. HUMIRA [Suspect]
     Active Substance: ADALIMUMAB
     Route: 058
     Dates: start: 20210101
  5. COVID-19 VACCINE NOS [Suspect]
     Active Substance: COVID-19 VACCINE
     Indication: COVID-19 immunisation
     Route: 030

REACTIONS (21)
  - Deafness neurosensory [Unknown]
  - Vertigo [Recovered/Resolved]
  - Multiple allergies [Recovering/Resolving]
  - Knee arthroplasty [Recovering/Resolving]
  - Post-acute COVID-19 syndrome [Recovering/Resolving]
  - Knee arthroplasty [Recovered/Resolved]
  - Herpes zoster [Unknown]
  - Balance disorder [Unknown]
  - Laryngitis [Recovered/Resolved]
  - Tinnitus [Not Recovered/Not Resolved]
  - Vocal cord dysfunction [Unknown]
  - Laryngitis [Not Recovered/Not Resolved]
  - Sinusitis [Unknown]
  - COVID-19 [Recovered/Resolved]
  - Attention deficit hyperactivity disorder [Unknown]
  - Injection site erythema [Not Recovered/Not Resolved]
  - Injection site pruritus [Not Recovered/Not Resolved]
  - COVID-19 [Recovered/Resolved]
  - Brain fog [Unknown]
  - Cerebral disorder [Unknown]
  - COVID-19 [Recovered/Resolved]

NARRATIVE: CASE EVENT DATE: 20210101
